FAERS Safety Report 19371267 (Version 1)
Quarter: 2021Q2

REPORT INFORMATION
  Report Type: Spontaneous
  Country: US (occurrence: US)
  Receive Date: 20210603
  Receipt Date: 20210603
  Transmission Date: 20210717
  Serious: Yes (Other)
  Sender: FDA-Public Use
  Company Number: US-ELI_LILLY_AND_COMPANY-US202105010603

PATIENT
  Sex: Female

DRUGS (2)
  1. HUMALOG [Suspect]
     Active Substance: INSULIN LISPRO
     Indication: PRODUCT USED FOR UNKNOWN INDICATION
     Dosage: 15 INTERNATIONAL UNIT, UNKNOWN
     Route: 065
     Dates: start: 1991
  2. INSULIN  LISPRO [Suspect]
     Active Substance: INSULIN LISPRO
     Indication: PRODUCT USED FOR UNKNOWN INDICATION
     Dosage: 30 INTERNATIONAL UNIT, UNKNOWN
     Route: 065

REACTIONS (6)
  - Accident [Unknown]
  - Coma [Unknown]
  - Memory impairment [Unknown]
  - Increased insulin requirement [Unknown]
  - Myopia [Unknown]
  - Limb traumatic amputation [Unknown]

NARRATIVE: CASE EVENT DATE: 2016
